FAERS Safety Report 9665934 (Version 15)
Quarter: 2014Q1

REPORT INFORMATION
  Report Type: Spontaneous
  Country: US (occurrence: None)
  Receive Date: 20131031
  Receipt Date: 20140318
  Transmission Date: 20141002
  Serious: Yes (Other)
  Sender: FDA-Public Use
  Company Number: ADR-2013-01971

PATIENT
  Age: 55 Year
  Sex: Female

DRUGS (3)
  1. BACLOFEN [Suspect]
     Indication: PAIN
  2. MORPHINE [Suspect]
  3. CLONIDINE [Suspect]

REACTIONS (63)
  - Dyskinesia [None]
  - Heart rate increased [None]
  - Blood pressure increased [None]
  - Headache [None]
  - Paraesthesia [None]
  - Erythema [None]
  - Cyanosis [None]
  - Drug withdrawal syndrome [None]
  - Fall [None]
  - Hyperhidrosis [None]
  - Musculoskeletal pain [None]
  - Device malfunction [None]
  - Device kink [None]
  - Pneumonia aspiration [None]
  - Hepatic failure [None]
  - Renal failure [None]
  - Myocardial infarction [None]
  - Respiratory failure [None]
  - Hypoaesthesia [None]
  - Rash [None]
  - Dysuria [None]
  - Upper limb fracture [None]
  - Contusion [None]
  - No therapeutic response [None]
  - Implant site pain [None]
  - Pain [None]
  - Abdominal pain [None]
  - Neck pain [None]
  - Pulmonary embolism [None]
  - Back pain [None]
  - Urinary retention [None]
  - Muscle spasms [None]
  - Back pain [None]
  - Malaise [None]
  - Weight decreased [None]
  - Hypoaesthesia [None]
  - Cardiovascular disorder [None]
  - Implant site swelling [None]
  - Blister [None]
  - Syncope [None]
  - Transient ischaemic attack [None]
  - Injection site ulcer [None]
  - Loss of consciousness [None]
  - Movement disorder [None]
  - Multiple fractures [None]
  - Implant site mass [None]
  - Injury [None]
  - Head injury [None]
  - Neck injury [None]
  - Neurological symptom [None]
  - Haemorrhage [None]
  - Iatrogenic injury [None]
  - Nerve injury [None]
  - Device alarm issue [None]
  - Catheter site pain [None]
  - Injection site vesicles [None]
  - Injection site scar [None]
  - Tinnitus [None]
  - Haematoma [None]
  - Laceration [None]
  - Thrombocytopenia [None]
  - Platelet disorder [None]
  - Increased tendency to bruise [None]
